FAERS Safety Report 5153461-7 (Version None)
Quarter: 2006Q4

REPORT INFORMATION
  Report Type: 
  Country: None (occurrence: None)
  Receive Date: 20061117
  Receipt Date: 20061107
  Transmission Date: 20070319
  Serious: Yes (Hospitalization)
  Sender: FDA-Public Use
  Company Number: DE-ABBOTT-06P-062-0349453-00

PATIENT
  Sex: Female
  Weight: 88 kg

DRUGS (6)
  1. KLACID FILMTABLETTEN [Suspect]
     Indication: PNEUMONIA
     Route: 048
     Dates: start: 20060107, end: 20060114
  2. LEVOFLOXACIN [Suspect]
     Indication: PNEUMONIA
     Route: 048
     Dates: start: 20060115, end: 20060124
  3. DIPYRONE TAB [Concomitant]
     Indication: PAIN
     Route: 048
     Dates: start: 20060107, end: 20060109
  4. IBUPROFEN LYSINATE [Concomitant]
     Indication: HEADACHE
     Route: 048
     Dates: start: 20000101, end: 20060201
  5. NEO-EUNOMIN [Concomitant]
     Indication: CONTRACEPTION
     Route: 048
     Dates: start: 20010101, end: 20060201
  6. BETA BLOCKERS [Concomitant]
     Indication: DRUG USE FOR UNKNOWN INDICATION
     Route: 048
     Dates: start: 20040101, end: 20060201

REACTIONS (1)
  - AUTOIMMUNE THROMBOCYTOPENIA [None]
